FAERS Safety Report 15362393 (Version 1)
Quarter: 2018Q3

REPORT INFORMATION
  Report Type: Spontaneous
  Country: US (occurrence: US)
  Receive Date: 20180907
  Receipt Date: 20180907
  Transmission Date: 20181010
  Serious: No
  Sender: FDA-Public Use
  Company Number: US-ELI_LILLY_AND_COMPANY-US201808008788

PATIENT
  Age: 35 Year
  Sex: Female

DRUGS (5)
  1. LETAIRIS [Suspect]
     Active Substance: AMBRISENTAN
     Indication: PULMONARY ARTERIAL HYPERTENSION
  2. HUMIRA [Concomitant]
     Active Substance: ADALIMUMAB
  3. LETAIRIS [Suspect]
     Active Substance: AMBRISENTAN
     Indication: COR PULMONALE
     Dosage: 10 MG, DAILY
     Route: 065
     Dates: start: 20170602
  4. ADCIRCA [Suspect]
     Active Substance: TADALAFIL
     Indication: COR PULMONALE
     Dosage: 40 MG, DAILY
     Route: 065
     Dates: start: 20180201
  5. ADCIRCA [Suspect]
     Active Substance: TADALAFIL
     Indication: PULMONARY ARTERIAL HYPERTENSION

REACTIONS (3)
  - Drug dose omission [Unknown]
  - Injection site reaction [Unknown]
  - Ill-defined disorder [Unknown]

NARRATIVE: CASE EVENT DATE: 20180815
